FAERS Safety Report 21993428 (Version 1)
Quarter: 2023Q1

REPORT INFORMATION
  Report Type: Spontaneous
  Country: US (occurrence: US)
  Receive Date: 20230215
  Receipt Date: 20230215
  Transmission Date: 20230418
  Serious: Yes (Other)
  Sender: FDA-Public Use
  Company Number: US-002147023-NVSC2023US029504

PATIENT
  Sex: Male

DRUGS (1)
  1. PLUVICTO [Suspect]
     Active Substance: LUTETIUM LU-177 VIPIVOTIDE TETRAXETAN
     Indication: Prostate cancer metastatic
     Dosage: 200 MCI
     Route: 065
     Dates: start: 20221114

REACTIONS (6)
  - Pneumonia [Unknown]
  - Malignant neoplasm progression [Unknown]
  - Prostate cancer metastatic [Unknown]
  - Anaemia [Unknown]
  - Haemoglobin decreased [Unknown]
  - Iron deficiency [Unknown]
